FAERS Safety Report 19593373 (Version 2)
Quarter: 2021Q3

REPORT INFORMATION
  Report Type: Spontaneous
  Country: NL (occurrence: NL)
  Receive Date: 20210722
  Receipt Date: 20210726
  Transmission Date: 20211014
  Serious: Yes (Hospitalization)
  Sender: FDA-Public Use
  Company Number: NL-TEVA-2021-NL-1933415

PATIENT
  Age: 0 Week
  Sex: Female

DRUGS (2)
  1. LABETALOL TABLET 200MG / BRAND NAME NOT SPECIFIED [Suspect]
     Active Substance: LABETALOL\LABETALOL HYDROCHLORIDE
     Indication: GESTATIONAL HYPERTENSION
     Dosage: 600 MILLIGRAM DAILY; THERAPY END DATE: ASKU
     Route: 065
     Dates: start: 202103
  2. METHYLDOPA TABLET 500MG / BRAND NAME NOT SPECIFIED [Suspect]
     Active Substance: METHYLDOPA
     Indication: GESTATIONAL HYPERTENSION
     Dosage: 1500 MILLIGRAM DAILY; THERAPY END DATE: ASKU
     Route: 065
     Dates: start: 202103

REACTIONS (1)
  - Impaired gastric emptying [Recovered/Resolved]

NARRATIVE: CASE EVENT DATE: 20210312
